FAERS Safety Report 6366416-1 (Version None)
Quarter: 2009Q3

REPORT INFORMATION
  Report Type: 
  Country: None (occurrence: None)
  Receive Date: 20090921
  Receipt Date: 20090916
  Transmission Date: 20100115
  Serious: Yes (Hospitalization, Other)
  Sender: FDA-Public Use
  Company Number: CH-WYE-G04444509

PATIENT
  Age: 72 Year
  Sex: Male

DRUGS (15)
  1. EFFEXOR [Suspect]
     Route: 048
     Dates: start: 20090706, end: 20090707
  2. EFFEXOR [Interacting]
     Route: 048
     Dates: start: 20090710, end: 20090719
  3. EFFEXOR [Interacting]
     Route: 048
     Dates: start: 20090720, end: 20090726
  4. EFFEXOR [Interacting]
     Route: 048
     Dates: start: 20090727, end: 20090803
  5. LISIPRIL [Concomitant]
     Route: 048
     Dates: start: 20070101
  6. SEROQUEL [Concomitant]
     Route: 048
     Dates: start: 20090721, end: 20090722
  7. SEROQUEL [Concomitant]
     Route: 048
     Dates: start: 20090723, end: 20090725
  8. SEROQUEL [Concomitant]
     Route: 048
     Dates: start: 20090726
  9. DIPIPERON [Concomitant]
     Route: 048
     Dates: start: 20090629, end: 20090723
  10. DIPIPERON [Concomitant]
     Route: 048
     Dates: start: 20090724
  11. RISPERDAL [Interacting]
     Route: 048
     Dates: start: 20090629, end: 20090720
  12. RISPERDAL [Interacting]
     Route: 048
     Dates: start: 20090721, end: 20090727
  13. RISPERDAL [Interacting]
     Route: 048
     Dates: start: 20090728
  14. ASPIRIN [Concomitant]
     Route: 048
     Dates: start: 20070101
  15. TORASEMIDE [Concomitant]
     Route: 048
     Dates: start: 20090401

REACTIONS (5)
  - AGGRESSION [None]
  - DRUG INTERACTION [None]
  - EXTRAPYRAMIDAL DISORDER [None]
  - SALIVARY HYPERSECRETION [None]
  - SEDATION [None]
